FAERS Safety Report 20312439 (Version 1)
Quarter: 2022Q1

REPORT INFORMATION
  Report Type: Spontaneous
  Country: US (occurrence: None)
  Receive Date: 20220107
  Receipt Date: 20220107
  Transmission Date: 20220423
  Serious: Yes (Other)
  Sender: FDA-Public Use
  Company Number: None

PATIENT
  Age: 25 Year
  Sex: Male
  Weight: 82.35 kg

DRUGS (2)
  1. CASIRIVIMAB [Suspect]
     Active Substance: CASIRIVIMAB
     Indication: COVID-19
     Route: 041
     Dates: start: 20220107, end: 20220107
  2. IMDEVIMAB [Suspect]
     Active Substance: IMDEVIMAB
     Indication: COVID-19
     Route: 041
     Dates: start: 20220107, end: 20220107

REACTIONS (11)
  - Infusion related reaction [None]
  - Dizziness [None]
  - Vision blurred [None]
  - Hyperhidrosis [None]
  - Feeling cold [None]
  - Cold sweat [None]
  - Blood pressure decreased [None]
  - Heart rate decreased [None]
  - Respiratory rate increased [None]
  - Refusal of treatment by patient [None]
  - Intentional product use issue [None]

NARRATIVE: CASE EVENT DATE: 20220107
